FAERS Safety Report 12838628 (Version 1)
Quarter: 2016Q4

REPORT INFORMATION
  Report Type: Spontaneous
  Country: GB (occurrence: GB)
  Receive Date: 20161012
  Receipt Date: 20161012
  Transmission Date: 20170207
  Serious: Yes (Disabling, Other)
  Sender: FDA-Public Use
  Company Number: GB-TEVA-700978ACC

PATIENT
  Age: 16 Year
  Sex: Male
  Weight: 108 kg

DRUGS (6)
  1. MIGRALEVE YELLOW [Concomitant]
  2. AMOXICILLIN. [Concomitant]
     Active Substance: AMOXICILLIN
  3. CLARITHROMYCIN. [Concomitant]
     Active Substance: CLARITHROMYCIN
  4. MIGRALEVE PINK [Concomitant]
  5. OMEPRAZOLE. [Concomitant]
     Active Substance: OMEPRAZOLE
  6. ACTAVIS GROUP PTC TOPIRAMATE [Suspect]
     Active Substance: TOPIRAMATE
     Indication: PROPHYLAXIS
     Route: 048
     Dates: start: 20160322, end: 20160901

REACTIONS (5)
  - Amnesia [Recovering/Resolving]
  - Fatigue [Recovering/Resolving]
  - Sleep disorder [Recovering/Resolving]
  - Aphasia [Recovering/Resolving]
  - Coordination abnormal [Recovering/Resolving]

NARRATIVE: CASE EVENT DATE: 20160815
